FAERS Safety Report 5473497-6 (Version None)
Quarter: 2007Q3

REPORT INFORMATION
  Report Type: 
  Country: None (occurrence: None)
  Receive Date: 20070828
  Receipt Date: 20070716
  Transmission Date: 20080115
  Serious: Yes (Other)
  Sender: FDA-Public Use
  Company Number: 2007034357

PATIENT
  Age: 56 Year
  Sex: Male
  Weight: 147.4 kg

DRUGS (5)
  1. EXUBERA [Suspect]
     Indication: TYPE 2 DIABETES MELLITUS
     Dosage: 6 MG
     Dates: start: 20060803
  2. ALLOPURINOL [Concomitant]
  3. VIAGRA [Concomitant]
  4. METFORMIN HCL [Concomitant]
  5. PREVACID [Concomitant]

REACTIONS (5)
  - BLOOD CHOLESTEROL INCREASED [None]
  - BLOOD GLUCOSE INCREASED [None]
  - FORCED EXPIRATORY VOLUME DECREASED [None]
  - LOW DENSITY LIPOPROTEIN INCREASED [None]
  - URINE ABNORMALITY [None]
